FAERS Safety Report 21823022 (Version 1)
Quarter: 2023Q1

REPORT INFORMATION
  Report Type: Spontaneous
  Country: RU (occurrence: None)
  Receive Date: 20230105
  Receipt Date: 20230105
  Transmission Date: 20230418
  Serious: Yes (Other)
  Sender: FDA-Public Use
  Company Number: 2023A000021

PATIENT
  Age: 72 Year
  Sex: Male

DRUGS (1)
  1. ACALABRUTINIB [Suspect]
     Active Substance: ACALABRUTINIB
     Indication: Chronic lymphocytic leukaemia
     Dosage: (29-DEC-2022 WAS A 10TH DAY OF THE THERAPY)
     Route: 048

REACTIONS (1)
  - Leukocytosis [Recovering/Resolving]
